FAERS Safety Report 7407991-5 (Version None)
Quarter: 2011Q2

REPORT INFORMATION
  Report Type: 
  Country: None (occurrence: None)
  Receive Date: 20110412
  Receipt Date: 20110407
  Transmission Date: 20111010
  Serious: No
  Sender: FDA-Public Use
  Company Number: US-PFIZER INC-2011077366

PATIENT
  Sex: Female
  Weight: 52.154 kg

DRUGS (2)
  1. ADVIL PM [Suspect]
     Indication: HYPERSENSITIVITY
     Dosage: 400/76 TWO TIMES A DAY
     Route: 048
     Dates: start: 20110301
  2. VITAMINS [Concomitant]
     Dosage: UNK

REACTIONS (2)
  - HANGOVER [None]
  - MALAISE [None]
